FAERS Safety Report 13350506 (Version 1)
Quarter: 2017Q1

REPORT INFORMATION
  Report Type: Other
  Country: GB (occurrence: GB)
  Receive Date: 20170320
  Receipt Date: 20170320
  Transmission Date: 20170429
  Serious: Yes (Hospitalization)
  Sender: FDA-Public Use
  Company Number: GB-GLENMARK PHARMACEUTICALS-2017GMK026754

PATIENT

DRUGS (2)
  1. RIVAROXABAN [Concomitant]
     Active Substance: RIVAROXABAN
     Indication: PRODUCT USED FOR UNKNOWN INDICATION
     Dosage: UNK
     Route: 065
  2. LINEZOLID. [Suspect]
     Active Substance: LINEZOLID
     Indication: CELLULITIS
     Dosage: 500 MG, BID
     Route: 048
     Dates: start: 20170127, end: 20170221

REACTIONS (4)
  - Rectal haemorrhage [Unknown]
  - Thrombocytopenia [Not Recovered/Not Resolved]
  - Medication monitoring error [Unknown]
  - Product use issue [Unknown]

NARRATIVE: CASE EVENT DATE: 20170128
